FAERS Safety Report 15924341 (Version 1)
Quarter: 2019Q1

REPORT INFORMATION
  Report Type: Spontaneous
  Country: RO (occurrence: RO)
  Receive Date: 20190206
  Receipt Date: 20190206
  Transmission Date: 20190417
  Serious: Yes (Hospitalization, Other)
  Sender: FDA-Public Use
  Company Number: RO-AUROBINDO-AUR-APL-2019-005784

PATIENT

DRUGS (1)
  1. IBUPROFEN. [Suspect]
     Active Substance: IBUPROFEN
     Indication: PYREXIA
     Dosage: 3 DOSES OF 100 MG (TWO HOURS APART EACH OTHER) FOLLOWED BY 190 MG 6 H LATER
     Route: 065

REACTIONS (2)
  - Inappropriate schedule of product administration [Unknown]
  - Gastritis haemorrhagic [Recovering/Resolving]
